FAERS Safety Report 9169709 (Version 2)
Quarter: 2013Q2

REPORT INFORMATION
  Report Type: Spontaneous
  Country: SK (occurrence: SK)
  Receive Date: 20130318
  Receipt Date: 20130405
  Transmission Date: 20140414
  Serious: Yes (Other)
  Sender: FDA-Public Use
  Company Number: PHHY2013SK017812

PATIENT
  Age: 64 Year
  Sex: Female

DRUGS (6)
  1. OXALIPLATIN [Suspect]
     Indication: COLORECTAL CANCER
     Dosage: 85 MG/M2, BY 2-HOURS 5% GLUCOSE INFUSION
     Route: 042
     Dates: start: 20100324, end: 20100617
  2. 5-FLUOROURACIL [Suspect]
     Indication: COLORECTAL CANCER METASTATIC
     Dosage: 400 MG/M2, UNK
     Route: 042
     Dates: start: 20100324
  3. BEVACIZUMAB [Suspect]
     Indication: COLORECTAL CANCER
     Dosage: 5 MG/KG, BODY WEIGHT BY 30-90 MINUTES INFUSION IN DAY 1 AND DAY 15 OF EACH CYCLE
  4. CALCIUM LEUCOVORIN [Suspect]
     Indication: COLORECTAL CANCER METASTATIC
     Dosage: 200 MG/M2, VIA 2 HOURS INFUSION WITH BOLUS 5-FU
     Route: 042
     Dates: start: 20100324
  5. 5-FU [Concomitant]
     Indication: COLORECTAL CANCER
     Dosage: 350 MG/M2, QD
     Route: 042
  6. CALCIUM LEUCOVORN [Concomitant]
     Indication: COLORECTAL CANCER
     Dosage: 20 MG/M2, QD

REACTIONS (5)
  - Neurotoxicity [Unknown]
  - Leukopenia [Unknown]
  - Hepatotoxicity [Unknown]
  - Thrombosis [Unknown]
  - Oedema [Recovered/Resolved]
